FAERS Safety Report 14951575 (Version 4)
Quarter: 2018Q2

REPORT INFORMATION
  Report Type: Spontaneous
  Country: US (occurrence: US)
  Receive Date: 20180530
  Receipt Date: 20180622
  Transmission Date: 20180711
  Serious: Yes (Hospitalization)
  Sender: FDA-Public Use
  Company Number: US-TEVA-2018-US-896602

PATIENT
  Age: 75 Year
  Sex: Female
  Weight: 82 kg

DRUGS (7)
  1. LORAZEPAM. [Concomitant]
     Active Substance: LORAZEPAM
     Dosage: AS NEEDED
  2. HYDROXYUREA. [Concomitant]
     Active Substance: HYDROXYUREA
  3. PROCHLORPER [Concomitant]
  4. SYNRIBO [Suspect]
     Active Substance: OMACETAXINE MEPESUCCINATE
     Indication: ACUTE MYELOID LEUKAEMIA
     Dosage: 1.32 ML DAILY; 14 DAYS OF A 28 DAY CYCLE, 2.3MG/0.66ML)
     Route: 058
     Dates: start: 20180518
  5. ENALAPRIL MALEATE. [Concomitant]
     Active Substance: ENALAPRIL MALEATE
  6. ESCITALOPRAM OXALATE. [Concomitant]
     Active Substance: ESCITALOPRAM OXALATE
  7. XANAX [Concomitant]
     Active Substance: ALPRAZOLAM
     Indication: ANXIETY

REACTIONS (4)
  - Peripheral swelling [Unknown]
  - Fatigue [Not Recovered/Not Resolved]
  - Nausea [Unknown]
  - Renal failure [Unknown]

NARRATIVE: CASE EVENT DATE: 201805
